FAERS Safety Report 4896859-4 (Version None)
Quarter: 2006Q1

REPORT INFORMATION
  Report Type: 
  Country: None (occurrence: None)
  Receive Date: 20060131
  Receipt Date: 20060126
  Transmission Date: 20060701
  Serious: Yes (Life-Threatening)
  Sender: FDA-Public Use
  Company Number: 2006PK00225

PATIENT
  Age: 70 Year
  Sex: Female

DRUGS (6)
  1. METOPROLOL SUCCINATE [Suspect]
     Route: 048
     Dates: start: 20051209, end: 20051229
  2. CORDARONE [Interacting]
     Indication: ATRIAL FIBRILLATION
     Route: 048
     Dates: start: 20051201, end: 20051229
  3. CORDARONE [Interacting]
     Indication: ATRIAL FLUTTER
     Route: 048
     Dates: start: 20051201, end: 20051229
  4. DILTIAZEM [Interacting]
     Route: 048
     Dates: start: 20051201, end: 20051229
  5. ASPIRIN [Concomitant]
     Route: 048
  6. SINTROM [Concomitant]
     Route: 048

REACTIONS (10)
  - ATRIAL FLUTTER [None]
  - BRADYCARDIA [None]
  - CARDIO-RESPIRATORY ARREST [None]
  - CORONARY ARTERY ANEURYSM [None]
  - CORONARY ARTERY DISEASE [None]
  - DRUG INTERACTION [None]
  - HYPOXIA [None]
  - PARESIS [None]
  - SINUS TACHYCARDIA [None]
  - SYNCOPE [None]
